FAERS Safety Report 16616356 (Version 1)
Quarter: 2019Q3

REPORT INFORMATION
  Report Type: Spontaneous
  Country: SE (occurrence: SE)
  Receive Date: 20190723
  Receipt Date: 20190723
  Transmission Date: 20191004
  Serious: Yes (Life-Threatening, Hospitalization, Other)
  Sender: FDA-Public Use
  Company Number: SE-MYLANLABS-2019M1068289

PATIENT
  Age: 55 Year
  Sex: Male

DRUGS (2)
  1. FLUCLOXACILLIN [Suspect]
     Active Substance: FLUCLOXACILLIN
     Indication: GROIN INFECTION
     Dosage: UNK
  2. METFORMIN [Suspect]
     Active Substance: METFORMIN HYDROCHLORIDE
     Indication: TYPE 2 DIABETES MELLITUS
     Dosage: LOW DOSE

REACTIONS (5)
  - Tachycardia [Unknown]
  - Hypotension [Unknown]
  - Drug ineffective [Unknown]
  - Diabetic ketoacidosis [Recovered/Resolved]
  - Septic shock [Unknown]
